FAERS Safety Report 9704107 (Version 1)
Quarter: 2013Q4

REPORT INFORMATION
  Report Type: Spontaneous
  Country: US (occurrence: US)
  Receive Date: 20131122
  Receipt Date: 20131122
  Transmission Date: 20140711
  Serious: No
  Sender: FDA-Public Use
  Company Number: US-GLAXOSMITHKLINE-A1002667A

PATIENT
  Age: 55 Year
  Sex: Female

DRUGS (3)
  1. BUPROPION SR [Suspect]
     Indication: EX-TOBACCO USER
     Dosage: 150MG PER DAY
     Route: 048
     Dates: start: 201210, end: 201210
  2. THYROID MEDICATION [Concomitant]
  3. ASPIRIN [Concomitant]

REACTIONS (3)
  - Violence-related symptom [Recovered/Resolved]
  - Anxiety [Unknown]
  - Nervousness [Unknown]
